FAERS Safety Report 9016669 (Version 2)
Quarter: 2013Q1

REPORT INFORMATION
  Report Type: Spontaneous
  Country: ES (occurrence: ES)
  Receive Date: 20130117
  Receipt Date: 20130124
  Transmission Date: 20140127
  Serious: Yes (Other)
  Sender: FDA-Public Use
  Company Number: ES-AMGEN-ESPSP2013001771

PATIENT
  Age: 67 Year
  Sex: Female

DRUGS (7)
  1. PROLIA [Suspect]
     Indication: OSTEOPOROSIS
     Dosage: UNK
     Dates: start: 20121220
  2. TRANKIMAZIN [Concomitant]
     Indication: NERVOUSNESS
     Dosage: 0.25 MG, BID
     Dates: start: 2011
  3. TRANKIMAZIN [Concomitant]
     Indication: ANXIETY
  4. VITAMIN D /00107901/ [Concomitant]
  5. SUMIAL [Concomitant]
     Dosage: 10 MG, BID
  6. LIPLAT [Concomitant]
     Indication: BLOOD CHOLESTEROL
     Dosage: 10 MG, UNK
  7. ORFIDAL [Concomitant]
     Indication: INSOMNIA

REACTIONS (18)
  - Hallucination [Recovered/Resolved]
  - Hypertension [Recovered/Resolved]
  - Syncope [Recovered/Resolved]
  - Nervousness [Unknown]
  - Varicophlebitis [Unknown]
  - Abnormal dreams [Unknown]
  - Balance disorder [Unknown]
  - Vision blurred [Recovered/Resolved]
  - Dizziness [Recovered/Resolved]
  - Feeling abnormal [Unknown]
  - Nausea [Not Recovered/Not Resolved]
  - Confusional state [Unknown]
  - Condition aggravated [Not Recovered/Not Resolved]
  - Blood pressure abnormal [Unknown]
  - Anxiety [Unknown]
  - Somnolence [Unknown]
  - Vertigo [Unknown]
  - Erythema [Not Recovered/Not Resolved]
